FAERS Safety Report 8430224-8 (Version None)
Quarter: 2012Q2

REPORT INFORMATION
  Report Type: 
  Country: None (occurrence: None)
  Receive Date: 20120612
  Receipt Date: 20120605
  Transmission Date: 20120825
  Serious: Yes (Life-Threatening, Hospitalization)
  Sender: FDA-Public Use
  Company Number: JP-BRISTOL-MYERS SQUIBB COMPANY-16671422

PATIENT
  Age: 68 Year
  Sex: Male

DRUGS (8)
  1. ORENCIA [Suspect]
     Indication: RHEUMATOID ARTHRITIS
     Route: 041
     Dates: start: 20110601
  2. PREDNISOLONE [Concomitant]
     Indication: RHEUMATOID ARTHRITIS
  3. SELBEX [Concomitant]
     Indication: PROPHYLAXIS
  4. LORCAM [Concomitant]
     Indication: RHEUMATOID ARTHRITIS
  5. LOXONIN [Concomitant]
     Indication: RHEUMATOID ARTHRITIS
  6. BUCILLAMINE [Concomitant]
     Indication: RHEUMATOID ARTHRITIS
  7. RISEDRONATE SODIUM [Concomitant]
  8. VOLTAREN [Concomitant]
     Indication: RHEUMATOID ARTHRITIS

REACTIONS (1)
  - CAROTID ANEURYSM RUPTURE [None]
